FAERS Safety Report 16656642 (Version 4)
Quarter: 2019Q4

REPORT INFORMATION
  Report Type: Spontaneous
  Country: US (occurrence: US)
  Receive Date: 20190801
  Receipt Date: 20191206
  Transmission Date: 20200122
  Serious: No
  Sender: FDA-Public Use
  Company Number: US-PFIZER INC-2019324320

PATIENT
  Age: 71 Year
  Sex: Female
  Weight: 54.42 kg

DRUGS (1)
  1. LORBRENA [Suspect]
     Active Substance: LORLATINIB
     Indication: LUNG NEOPLASM MALIGNANT
     Dosage: 25 MG, TWICE A DAY
     Dates: start: 201903, end: 201907

REACTIONS (6)
  - Somnolence [Unknown]
  - Memory impairment [Unknown]
  - Neoplasm progression [Unknown]
  - Confusional state [Unknown]
  - Balance disorder [Unknown]
  - Amnesia [Unknown]

NARRATIVE: CASE EVENT DATE: 2019
